FAERS Safety Report 4336013-8 (Version None)
Quarter: 2004Q2

REPORT INFORMATION
  Report Type: 
  Country: None (occurrence: None)
  Receive Date: 20040406
  Receipt Date: 20040323
  Transmission Date: 20050107
  Serious: Yes (Other)
  Sender: FDA-Public Use
  Company Number: 144-20785-04040001

PATIENT
  Age: 60 Year
  Sex: Male

DRUGS (8)
  1. THALIDOMIDE-PHARMION (THALIDOMIDE)(CAPSULES) [Suspect]
     Indication: MULTIPLE MYELOMA
     Dosage: 200 MG , DAILY ORAL  ; 100 MG , DAILY ORAL
     Route: 048
  2. ALLOPURINOL [Concomitant]
  3. BICAROBONATE [Concomitant]
  4. VINCRISTINE [Concomitant]
  5. DOXORUBICIN [Concomitant]
  6. DEXAMETHASONE [Concomitant]
  7. MELPHALAN [Concomitant]
  8. PREDNISONE [Concomitant]

REACTIONS (3)
  - ANURIA [None]
  - RENAL FAILURE ACUTE [None]
  - TUMOUR LYSIS SYNDROME [None]
